FAERS Safety Report 10970399 (Version 2)
Quarter: 2015Q2

REPORT INFORMATION
  Report Type: Report from Study
  Country: US (occurrence: None)
  Receive Date: 20150327
  Receipt Date: 20150410
  Transmission Date: 20150821
  Serious: Yes (Other)
  Sender: FDA-Public Use
  Company Number: 2015AP007468

PATIENT
  Age: 55 Year
  Sex: Female
  Weight: 72 kg

DRUGS (8)
  1. FERRIPROX [Suspect]
     Active Substance: DEFERIPRONE
     Indication: MYELODYSPLASTIC SYNDROME
     Route: 048
     Dates: start: 20150228, end: 20150324
  2. VIDAZA [Suspect]
     Active Substance: AZACITIDINE
     Indication: PRODUCT USED FOR UNKNOWN INDICATION
     Dates: start: 20150323
  3. ZYRTEC [Concomitant]
     Active Substance: CETIRIZINE HYDROCHLORIDE
  4. FERRIPROX [Suspect]
     Active Substance: DEFERIPRONE
     Indication: IRON OVERLOAD
     Route: 048
     Dates: start: 20150228, end: 20150324
  5. ARANESP [Concomitant]
     Active Substance: DARBEPOETIN ALFA
  6. COMPAZINE (PROCHLORIPERAZINE EDISYLATE) [Concomitant]
  7. DESFERAL (DEFEROXAMINE MESILATE) [Concomitant]
  8. LIALDA (MESALAZINE) [Concomitant]

REACTIONS (3)
  - Diarrhoea [None]
  - Vomiting [None]
  - Agranulocytosis [None]

NARRATIVE: CASE EVENT DATE: 20150313
